FAERS Safety Report 4972481-6 (Version None)
Quarter: 2006Q2

REPORT INFORMATION
  Report Type: 
  Country: None (occurrence: None)
  Receive Date: 20060413
  Receipt Date: 20060404
  Transmission Date: 20061013
  Serious: Yes (Hospitalization)
  Sender: FDA-Public Use
  Company Number: FR-MERCK-0604FRA00004

PATIENT
  Age: 88 Year
  Sex: Female

DRUGS (1)
  1. NOROXIN [Suspect]
     Indication: DYSURIA
     Route: 048
     Dates: start: 20051224, end: 20051228

REACTIONS (2)
  - DEHYDRATION [None]
  - RENAL FAILURE ACUTE [None]
